FAERS Safety Report 16382527 (Version 1)
Quarter: 2019Q2

REPORT INFORMATION
  Report Type: Spontaneous
  Country: GB (occurrence: GB)
  Receive Date: 20190603
  Receipt Date: 20190603
  Transmission Date: 20190711
  Serious: Yes (Other)
  Sender: FDA-Public Use
  Company Number: GB-BAYER-2019-102306

PATIENT
  Age: 26 Year
  Sex: Female
  Weight: 82 kg

DRUGS (1)
  1. CLOTRIMAZOLE. [Suspect]
     Active Substance: CLOTRIMAZOLE
     Indication: CANDIDA INFECTION
     Dosage: 2 %, UNK
     Route: 061
     Dates: start: 20190405, end: 20190419

REACTIONS (3)
  - Palpitations [Recovered/Resolved]
  - Tachycardia [Unknown]
  - Dyspnoea [Recovered/Resolved]

NARRATIVE: CASE EVENT DATE: 20190415
